FAERS Safety Report 9397533 (Version 2)
Quarter: 2013Q3

REPORT INFORMATION
  Report Type: Spontaneous
  Country: US (occurrence: US)
  Receive Date: 20130712
  Receipt Date: 20130725
  Transmission Date: 20140515
  Serious: Yes (Hospitalization, Other)
  Sender: FDA-Public Use
  Company Number: US-JNJFOC-20130701524

PATIENT
  Age: 17 Year
  Sex: Female

DRUGS (3)
  1. TOPIRAMATE [Suspect]
     Indication: JUVENILE MYOCLONIC EPILEPSY
     Route: 048
  2. VALPROIC ACID [Interacting]
     Indication: JUVENILE MYOCLONIC EPILEPSY
     Route: 065
  3. LORAZEPAM [Suspect]
     Indication: CONVULSION
     Route: 048

REACTIONS (14)
  - Hyperammonaemic encephalopathy [Recovered/Resolved]
  - Acidosis hyperchloraemic [Recovered/Resolved]
  - Mental status changes [Recovered/Resolved]
  - Bradycardia [Recovered/Resolved]
  - Electrocardiogram QT prolonged [Recovered/Resolved]
  - Convulsion [Recovered/Resolved]
  - Drug interaction [Unknown]
  - Hypotension [Recovered/Resolved]
  - Confusional state [Recovered/Resolved]
  - Lethargy [Recovered/Resolved]
  - Aura [Recovered/Resolved]
  - Disorientation [Recovered/Resolved]
  - Sensory loss [Recovered/Resolved]
  - Somnolence [Recovered/Resolved]
